FAERS Safety Report 5777696-5 (Version None)
Quarter: 2008Q2

REPORT INFORMATION
  Report Type: 
  Country: None (occurrence: None)
  Receive Date: 20080618
  Receipt Date: 20080611
  Transmission Date: 20081010
  Serious: Yes (Other)
  Sender: FDA-Public Use
  Company Number: CN-BOEHRINGER INGELHEIM GMBH, GERMANY-2008-BP-09053RO

PATIENT
  Age: 43 Year
  Sex: Male

DRUGS (5)
  1. PREDNISONE TAB [Suspect]
     Indication: IMMUNOSUPPRESSION
  2. FLUCONAZOLE [Suspect]
     Indication: ANTIFUNGAL PROPHYLAXIS
  3. CYCLOSPORINE [Suspect]
     Indication: IMMUNOSUPPRESSION
  4. ITRACONAZOLE [Concomitant]
     Indication: ASPERGILLOSIS
  5. TERBINAFINE HCL [Concomitant]
     Indication: ASPERGILLOSIS

REACTIONS (1)
  - ASPERGILLOSIS [None]
